FAERS Safety Report 13868999 (Version 3)
Quarter: 2017Q4

REPORT INFORMATION
  Report Type: Spontaneous
  Country: JP (occurrence: JP)
  Receive Date: 20170815
  Receipt Date: 20171030
  Transmission Date: 20180320
  Serious: Yes (Death)
  Sender: FDA-Public Use
  Company Number: PHJP2017JP025116

PATIENT
  Age: 61 Year
  Sex: Female

DRUGS (1)
  1. VOTRIENT [Suspect]
     Active Substance: PAZOPANIB HYDROCHLORIDE
     Indication: UTERINE LEIOMYOSARCOMA
     Dosage: 800 MG, QD
     Route: 048

REACTIONS (5)
  - General physical health deterioration [Fatal]
  - Uterine leiomyosarcoma [Fatal]
  - Hypertension [Not Recovered/Not Resolved]
  - Malignant neoplasm progression [Fatal]
  - Respiratory depression [Fatal]
